FAERS Safety Report 4496819-1 (Version None)
Quarter: 2004Q4

REPORT INFORMATION
  Report Type: 
  Country: None (occurrence: None)
  Receive Date: 20041109
  Receipt Date: 20041025
  Transmission Date: 20050328
  Serious: Yes (Death)
  Sender: FDA-Public Use
  Company Number: ES-JNJFOC-20040910125

PATIENT
  Age: 40 Year
  Sex: Female
  Weight: 74 kg

DRUGS (2)
  1. CAELYX [Suspect]
     Indication: OVARIAN CANCER
     Route: 042
  2. CYCLOPHOSPHAMIDE [Suspect]
     Indication: OVARIAN CANCER
     Route: 042

REACTIONS (33)
  - ACUTE RESPIRATORY FAILURE [None]
  - ANOREXIA [None]
  - ANXIETY [None]
  - ASCITES [None]
  - ASTHENIA [None]
  - BLOOD CHLORIDE INCREASED [None]
  - BLOOD UREA INCREASED [None]
  - CARDIAC FAILURE [None]
  - CARDIAC FAILURE CONGESTIVE [None]
  - CARDIAC TAMPONADE [None]
  - CARDIOGENIC SHOCK [None]
  - CARDIOMEGALY [None]
  - CARDIOTOXICITY [None]
  - CHOLELITHIASIS [None]
  - COAGULOPATHY [None]
  - DISSEMINATED INTRAVASCULAR COAGULATION [None]
  - DIZZINESS [None]
  - GALLBLADDER DISORDER [None]
  - HAEMOGLOBIN DECREASED [None]
  - HEART RATE INCREASED [None]
  - MALAISE [None]
  - METABOLIC ACIDOSIS [None]
  - MULTI-ORGAN FAILURE [None]
  - NAUSEA [None]
  - PALLOR [None]
  - PERICARDIAL EFFUSION [None]
  - PLEURAL EFFUSION [None]
  - RED BLOOD CELL COUNT DECREASED [None]
  - TACHYCARDIA [None]
  - THERAPY NON-RESPONDER [None]
  - ULTRASOUND ABDOMEN ABNORMAL [None]
  - URINE OUTPUT DECREASED [None]
  - VOMITING [None]
